FAERS Safety Report 15410612 (Version 1)
Quarter: 2018Q3

REPORT INFORMATION
  Report Type: Spontaneous
  Country: US (occurrence: US)
  Receive Date: 20180921
  Receipt Date: 20180921
  Transmission Date: 20181010
  Serious: No
  Sender: FDA-Public Use
  Company Number: US-JNJFOC-20180901611

PATIENT
  Sex: Male
  Weight: 40.82 kg

DRUGS (3)
  1. STELARA [Suspect]
     Active Substance: USTEKINUMAB
     Indication: CROHN^S DISEASE
     Route: 058
  2. STELARA [Suspect]
     Active Substance: USTEKINUMAB
     Indication: CROHN^S DISEASE
     Route: 058
     Dates: start: 2017, end: 2018
  3. METHOTREXATE. [Concomitant]
     Active Substance: METHOTREXATE
     Indication: CROHN^S DISEASE
     Route: 065

REACTIONS (6)
  - Off label use [Unknown]
  - Diarrhoea [Not Recovered/Not Resolved]
  - Inflammation [Not Recovered/Not Resolved]
  - Product use issue [Unknown]
  - Pyrexia [Not Recovered/Not Resolved]
  - Inappropriate schedule of drug administration [Unknown]
